FAERS Safety Report 16398403 (Version 1)
Quarter: 2019Q2

REPORT INFORMATION
  Report Type: Spontaneous
  Country: JP (occurrence: JP)
  Receive Date: 20190606
  Receipt Date: 20190606
  Transmission Date: 20190711
  Serious: Yes (Hospitalization, Other)
  Sender: FDA-Public Use
  Company Number: JP-PFIZER INC-2019235300

PATIENT
  Age: 7 Decade
  Sex: Male

DRUGS (1)
  1. UNASYN [Suspect]
     Active Substance: AMPICILLIN SODIUM\SULBACTAM SODIUM
     Indication: PNEUMONIA
     Dosage: 3 G, 2X/DAY

REACTIONS (3)
  - Fatigue [Unknown]
  - Hyperpyrexia [Unknown]
  - Rash [Recovered/Resolved]
